FAERS Safety Report 6413054-8 (Version None)
Quarter: 2009Q4

REPORT INFORMATION
  Report Type: 
  Country: None (occurrence: None)
  Receive Date: 20091023
  Receipt Date: 20091023
  Transmission Date: 20100525
  Serious: Yes (Other)
  Sender: FDA-Public Use
  Company Number: None

PATIENT
  Sex: Male
  Weight: 136.0791 kg

DRUGS (2)
  1. CYMBALTA [Suspect]
     Indication: ANXIETY
     Dosage: 60MG 1 A DAY PO
     Route: 048
     Dates: start: 20090415, end: 20091001
  2. CYMBALTA [Suspect]
     Indication: DIABETIC NEUROPATHY
     Dosage: 60MG 1 A DAY PO
     Route: 048
     Dates: start: 20090415, end: 20091001

REACTIONS (5)
  - APATHY [None]
  - DISORIENTATION [None]
  - HYPERACUSIS [None]
  - LOSS OF EMPLOYMENT [None]
  - PARAESTHESIA [None]
